FAERS Safety Report 26048496 (Version 1)
Quarter: 2025Q4

REPORT INFORMATION
  Report Type: Spontaneous
  Country: US (occurrence: US)
  Receive Date: 20251114
  Receipt Date: 20251114
  Transmission Date: 20260118
  Serious: Yes (Other)
  Sender: NOVO NORDISK
  Company Number: US-NOVOPROD-1559762

PATIENT
  Age: 52 Year
  Sex: Male

DRUGS (6)
  1. WEGOVY [Suspect]
     Active Substance: SEMAGLUTIDE
     Indication: Weight control
     Dosage: 0.25 MG, QW
     Route: 058
     Dates: start: 20241222
  2. WEGOVY [Suspect]
     Active Substance: SEMAGLUTIDE
     Dosage: 0.5 MG, QW
     Route: 058
     Dates: start: 202501, end: 202508
  3. WEGOVY [Suspect]
     Active Substance: SEMAGLUTIDE
     Dosage: 1.7 MG, QW
     Route: 058
     Dates: start: 20251102
  4. WEGOVY [Suspect]
     Active Substance: SEMAGLUTIDE
     Dosage: 1 MG, QW
     Route: 058
     Dates: start: 202509, end: 202509
  5. WEGOVY [Suspect]
     Active Substance: SEMAGLUTIDE
     Dosage: 1 MG, QW(RESUMED)
     Route: 058
     Dates: start: 202509
  6. WEGOVY [Suspect]
     Active Substance: SEMAGLUTIDE
     Dosage: 0.5 MG, QW
     Route: 058
     Dates: start: 202508, end: 202509

REACTIONS (6)
  - Cyst removal [Recovered/Resolved]
  - Cyst removal [Recovered/Resolved]
  - Large intestine polyp [Unknown]
  - Anal skin tags [Unknown]
  - Cyst removal [Unknown]
  - Polyp [Unknown]

NARRATIVE: CASE EVENT DATE: 20250301
